FAERS Safety Report 9668541 (Version 1)
Quarter: 2013Q4

REPORT INFORMATION
  Report Type: Spontaneous
  Country: US (occurrence: US)
  Receive Date: 20131105
  Receipt Date: 20131105
  Transmission Date: 20140711
  Serious: No
  Sender: FDA-Public Use
  Company Number: US-BIOGENIDEC-2013BI103669

PATIENT
  Sex: Female

DRUGS (2)
  1. AVONEX [Suspect]
     Indication: RELAPSING-REMITTING MULTIPLE SCLEROSIS
     Route: 030
     Dates: start: 2000
  2. COPAXONE [Concomitant]

REACTIONS (8)
  - Peroneal nerve palsy [Unknown]
  - Anxiety [Unknown]
  - Injection site reaction [Unknown]
  - Drug hypersensitivity [Unknown]
  - Depression [Unknown]
  - Dizziness [Recovered/Resolved]
  - Fatigue [Recovered/Resolved]
  - Mood swings [Unknown]
